FAERS Safety Report 24929367 (Version 1)
Quarter: 2025Q1

REPORT INFORMATION
  Report Type: Spontaneous
  Country: US (occurrence: US)
  Receive Date: 20250205
  Receipt Date: 20250205
  Transmission Date: 20250409
  Serious: No
  Sender: ROCHE
  Company Number: US-ROCHE-10000199458

PATIENT

DRUGS (2)
  1. OCREVUS [Suspect]
     Active Substance: OCRELIZUMAB
     Indication: Product used for unknown indication
     Route: 065
  2. CORTISONE [Concomitant]
     Active Substance: CORTISONE

REACTIONS (4)
  - Fatigue [Unknown]
  - Fatigue [Unknown]
  - Confusional state [Unknown]
  - Insomnia [Unknown]
